FAERS Safety Report 7510020-6 (Version None)
Quarter: 2011Q2

REPORT INFORMATION
  Report Type: 
  Country: None (occurrence: None)
  Receive Date: 20110527
  Receipt Date: 20110513
  Transmission Date: 20111010
  Serious: Yes (Hospitalization)
  Sender: FDA-Public Use
  Company Number: B0720896B

PATIENT
  Sex: Female
  Weight: 58 kg

DRUGS (5)
  1. PERINDOPRIL ERBUMINE [Concomitant]
     Dates: start: 20110413
  2. NEXIUM [Concomitant]
     Indication: PROPHYLAXIS
     Dates: start: 20110406
  3. PRAVASTATIN [Concomitant]
     Dates: start: 20050101
  4. OFATUMUMAB [Suspect]
     Indication: B-CELL LYMPHOMA
     Dosage: 1000MG PER DAY
     Dates: start: 20110413
  5. CHOP [Suspect]
     Indication: LYMPHOMA
     Dates: start: 20110413

REACTIONS (1)
  - CHEST PAIN [None]
